FAERS Safety Report 19082633 (Version 1)
Quarter: 2021Q2

REPORT INFORMATION
  Report Type: Spontaneous
  Country: US (occurrence: US)
  Receive Date: 20210401
  Receipt Date: 20210401
  Transmission Date: 20210717
  Serious: Yes (Death)
  Sender: FDA-Public Use
  Company Number: None

PATIENT
  Age: 71 Year
  Sex: Female

DRUGS (2)
  1. TACROLIMUS 1MG [Suspect]
     Active Substance: TACROLIMUS
     Indication: RENAL TRANSPLANT
     Dosage: ?          OTHER DOSE:1 CAPSULE;?
     Route: 048
     Dates: start: 20190814, end: 20210125
  2. MYCOPHENOLATE 250MG [Suspect]
     Active Substance: MYCOPHENOLIC ACID
     Indication: RENAL TRANSPLANT
     Dosage: ?          OTHER DOSE:1 CAPSULE;?
     Route: 048
     Dates: start: 20190219, end: 20210125

REACTIONS (1)
  - Cardiac arrest [None]

NARRATIVE: CASE EVENT DATE: 20210125
